FAERS Safety Report 10132844 (Version 1)
Quarter: 2014Q2

REPORT INFORMATION
  Report Type: Report from Study
  Country: US (occurrence: US)
  Receive Date: 20140428
  Receipt Date: 20140428
  Transmission Date: 20141212
  Serious: Yes (Death)
  Sender: FDA-Public Use
  Company Number: US-SA-2014SA052489

PATIENT
  Age: 50 Year
  Sex: Male

DRUGS (1)
  1. CAMPATH [Suspect]
     Indication: PRODUCT USED FOR UNKNOWN INDICATION
     Dosage: THE PATIENT RECEIVED A TEST DOSE 0.3 (UNITS NOT PROVIDED)
     Route: 065

REACTIONS (5)
  - Death [Fatal]
  - Myoclonus [Unknown]
  - General physical health deterioration [Unknown]
  - Tachycardia [Unknown]
  - Pyrexia [Unknown]
